FAERS Safety Report 8022843-8 (Version None)
Quarter: 2012Q1

REPORT INFORMATION
  Report Type: 
  Country: None (occurrence: None)
  Receive Date: 20120104
  Receipt Date: 20111221
  Transmission Date: 20120608
  Serious: Yes (Life-Threatening)
  Sender: FDA-Public Use
  Company Number: JP-ROCHE-1023236

PATIENT
  Age: 66 Year
  Sex: Female
  Weight: 78 kg

DRUGS (12)
  1. EPIRUBICIN [Suspect]
     Indication: BREAST CANCER METASTATIC
     Dosage: DOSAGE IS UNCERTAIN.
     Route: 041
     Dates: start: 20060811
  2. XELODA [Suspect]
     Indication: BREAST CANCER METASTATIC
     Dosage: DOSAGE IS UNCERTAIN.
     Route: 048
     Dates: start: 20070301, end: 20070501
  3. CYCLOPHOSPHAMIDE [Suspect]
     Dosage: DOSAGE IS UNCERTAIN.
     Route: 065
     Dates: start: 20070301, end: 20070501
  4. DOCETAXEL (AS COMPARATOR) [Concomitant]
     Indication: BREAST CANCER METASTATIC
     Dosage: DOSAGE IS UNCERTAIN.
     Route: 041
  5. TOREMIFENE [Concomitant]
     Indication: BREAST CANCER
     Dosage: DOSAGE IS UNCERTAIN.
     Route: 048
     Dates: start: 20071001, end: 20080301
  6. XELODA [Suspect]
     Dosage: DOSAGE IS UNCERTAIN.
     Route: 048
     Dates: start: 20070601, end: 20070901
  7. FLUOROURACIL [Concomitant]
     Indication: BREAST CANCER METASTATIC
     Dosage: DOSAGE IS UNCERTAIN.
     Route: 041
     Dates: start: 20060811
  8. FEMARA [Concomitant]
     Indication: BREAST CANCER METASTATIC
     Dosage: DOSAGE IS UNCERTAIN.
     Route: 048
     Dates: start: 20070201, end: 20070101
  9. TOREMIFENE [Concomitant]
     Indication: BREAST CANCER METASTATIC
     Dosage: DOSAGE IS UNCERTAIN.
     Route: 048
     Dates: start: 20070601, end: 20070901
  10. CALCIUM LACTATE [Concomitant]
     Dosage: DOSAGE IS UNCERTAIN.
     Route: 048
  11. URSO 250 [Concomitant]
     Dosage: DOSAGE IS UNCERTAIN.
     Route: 048
  12. CYCLOPHOSPHAMIDE [Suspect]
     Indication: BREAST CANCER METASTATIC
     Dosage: DOSAGE IS UNCERTAIN.
     Route: 065
     Dates: start: 20060811

REACTIONS (1)
  - ACUTE MYELOID LEUKAEMIA [None]
